FAERS Safety Report 5924779-2 (Version None)
Quarter: 2008Q4

REPORT INFORMATION
  Report Type: 
  Country: None (occurrence: None)
  Receive Date: 20081017
  Receipt Date: 20081003
  Transmission Date: 20090506
  Serious: Yes (Other)
  Sender: FDA-Public Use
  Company Number: DSU-2008-01606

PATIENT
  Age: 84 Year
  Sex: Female
  Weight: 55.7924 kg

DRUGS (6)
  1. AZOR [Suspect]
     Indication: HYPERTENSION
     Dosage: 5/20 MG (QHS) ,PER ORAL
     Route: 048
     Dates: start: 20080701
  2. KEPPRA [Suspect]
     Indication: CONVULSION
     Dosage: 1000 MG (500 MG, BID) ,PER ORAL; 500 MG (500 MG, QD) ,PER ORAL
     Route: 048
     Dates: start: 20080101, end: 20080101
  3. KEPPRA [Suspect]
     Indication: CONVULSION
     Dosage: 1000 MG (500 MG, BID) ,PER ORAL; 500 MG (500 MG, QD) ,PER ORAL
     Route: 048
     Dates: start: 20080101, end: 20080101
  4. KEPPRA [Suspect]
     Indication: CONVULSION
     Dosage: 1000 MG (500 MG, BID) ,PER ORAL; 500 MG (500 MG, QD) ,PER ORAL
     Route: 048
     Dates: start: 20080101
  5. ATENOLOL (ATENOLOL) (25 MILLIGRAM) (ATENOLOL) [Concomitant]
  6. ASPIRIN (ACETYLSALICYLIC ACID) (81 MILLIGRAM, TABLET) (ACETYLSALICYLIC [Concomitant]

REACTIONS (2)
  - CONVULSION [None]
  - SOMNOLENCE [None]
